FAERS Safety Report 16040218 (Version 1)
Quarter: 2019Q1

REPORT INFORMATION
  Report Type: Spontaneous
  Country: US (occurrence: US)
  Receive Date: 20190306
  Receipt Date: 20190306
  Transmission Date: 20190418
  Serious: Yes (Other)
  Sender: FDA-Public Use
  Company Number: US-SA-2019SA061076

PATIENT

DRUGS (5)
  1. PRALUENT [Suspect]
     Active Substance: ALIROCUMAB
     Indication: BLOOD CHOLESTEROL
     Dosage: UNK UNK, QW
     Route: 058
     Dates: end: 201807
  2. SIROLIMUS. [Suspect]
     Active Substance: SIROLIMUS
     Dosage: 7 MG, QD
     Route: 048
  3. RAPAMUNE [Concomitant]
     Active Substance: SIROLIMUS
     Dosage: UNK
     Dates: start: 2014, end: 2014
  4. MYCOPHENOLATE [Concomitant]
     Active Substance: MYCOPHENOLIC ACID
     Indication: TRANSPLANT
     Dosage: 250 MG, QD
     Route: 048
  5. SIROLIMUS. [Suspect]
     Active Substance: SIROLIMUS
     Indication: RENAL TRANSPLANT
     Dosage: UNK UNK, QOD
     Route: 048
     Dates: start: 2014

REACTIONS (1)
  - Drug level decreased [Recovering/Resolving]

NARRATIVE: CASE EVENT DATE: 2018
